FAERS Safety Report 23415293 (Version 1)
Quarter: 2024Q1

REPORT INFORMATION
  Report Type: Spontaneous
  Country: GB (occurrence: GB)
  Receive Date: 20240118
  Receipt Date: 20240118
  Transmission Date: 20240410
  Serious: Yes (Other)
  Sender: FDA-Public Use
  Company Number: None

PATIENT
  Age: 53 Year

DRUGS (11)
  1. FLUCONAZOLE [Suspect]
     Active Substance: FLUCONAZOLE
     Route: 065
  2. AMOXICILLIN [Suspect]
     Active Substance: AMOXICILLIN
     Route: 065
  3. ASCORBIC ACID\BIOTIN\CALCIUM PANTOTHENATE\CYANOCOBALAMIN\FOLIC ACID\NI [Concomitant]
     Active Substance: ASCORBIC ACID\BIOTIN\CALCIUM PANTOTHENATE\CYANOCOBALAMIN\FOLIC ACID\NIACINAMIDE\PYRIDOXINE HYDROCHLO
     Dosage: 1 DOSAGE FORM {DF}, ONCE DAILY
     Route: 065
     Dates: start: 20240101
  4. TOLVAPTAN [Concomitant]
     Active Substance: TOLVAPTAN
     Dosage: 15 MG
     Route: 065
     Dates: start: 20181114
  5. TOLVAPTAN [Concomitant]
     Active Substance: TOLVAPTAN
     Dosage: 45 MG
     Route: 065
     Dates: start: 20181114
  6. LOPERAMIDE [Concomitant]
     Active Substance: LOPERAMIDE
     Dosage: 12 MG
     Route: 065
     Dates: start: 20231224
  7. ACETAMINOPHEN [Concomitant]
     Active Substance: ACETAMINOPHEN
     Dosage: DOSAGE TEXT: TWO TO BE TAKEN EVERY 4-6 HOURS UP TO FOUR TIMES A DAY
     Route: 065
     Dates: start: 20231115
  8. SODIUM BICARBONATE [Concomitant]
     Active Substance: SODIUM BICARBONATE
     Dosage: 500 MG, ONCE DAILY
     Route: 065
     Dates: start: 20230221
  9. OMEPRAZOLE [Concomitant]
     Active Substance: OMEPRAZOLE
     Dosage: 20 MG, QD
     Route: 065
     Dates: start: 20231214
  10. CODEINE [Concomitant]
     Active Substance: CODEINE
     Dosage: 15 MG, TWICE DAILY (DOSAGE TEXT: AS PER SPECIALIST (TO HELP WITH STOMA OUTPUT)
     Route: 065
     Dates: start: 20231128
  11. SEVELAMER [Concomitant]
     Active Substance: SEVELAMER
     Dosage: 2 DOSAGE FORM {DF}, THRICE DAILY (DOSAGE TEXT: WITH FOOD)
     Route: 065
     Dates: start: 20231214

REACTIONS (1)
  - Liver function test abnormal [Recovered/Resolved]
